FAERS Safety Report 4533716-7 (Version None)
Quarter: 2004Q4

REPORT INFORMATION
  Report Type: 
  Country: None (occurrence: None)
  Receive Date: 20041221
  Receipt Date: 20041124
  Transmission Date: 20050328
  Serious: Yes (Hospitalization)
  Sender: FDA-Public Use
  Company Number: JP-GLAXOSMITHKLINE-B0358379A

PATIENT
  Age: 52 Year
  Sex: Female

DRUGS (7)
  1. PAXIL [Suspect]
     Indication: DEPRESSION
     Dosage: 10MG PER DAY
     Route: 048
     Dates: start: 20040922, end: 20041023
  2. MYSLEE [Concomitant]
     Indication: INSOMNIA
     Dosage: 5MG PER DAY
     Route: 048
     Dates: start: 20030705
  3. TINELAC [Concomitant]
     Indication: CONSTIPATION
     Dosage: 4UNIT PER DAY
     Route: 048
     Dates: start: 19980919
  4. MEILAX [Concomitant]
     Indication: ANXIETY DISORDER
     Dosage: 1MG TWICE PER DAY
     Route: 048
     Dates: start: 20040714
  5. SENIRAN [Concomitant]
     Indication: ANXIETY DISORDER
     Dosage: 2MG THREE TIMES PER DAY
     Route: 048
     Dates: start: 20030919
  6. TRANCOLON [Concomitant]
     Indication: IRRITABLE BOWEL SYNDROME
     Dosage: 1UNIT THREE TIMES PER DAY
     Route: 048
     Dates: start: 19910816
  7. TOFRANIL [Concomitant]
     Dosage: 30MG PER DAY
     Route: 048
     Dates: start: 19980114

REACTIONS (2)
  - ECZEMA [None]
  - HENOCH-SCHONLEIN PURPURA [None]
